FAERS Safety Report 8838927 (Version 1)
Quarter: 2012Q4

REPORT INFORMATION
  Report Type: Spontaneous
  Country: US (occurrence: None)
  Receive Date: 20121011
  Receipt Date: 20121011
  Transmission Date: 20130627
  Serious: No
  Sender: FDA-Public Use
  Company Number: None

PATIENT
  Age: 56 Year
  Sex: Female

DRUGS (1)
  1. XOLAIR [Suspect]
     Dosage: 300 mg every 4 weeks sub-q
     Route: 058
     Dates: start: 20120803, end: 20120803

REACTIONS (1)
  - Anaphylactic reaction [None]
